FAERS Safety Report 11137074 (Version 1)
Quarter: 2015Q2

REPORT INFORMATION
  Report Type: Spontaneous
  Country: JP (occurrence: JP)
  Receive Date: 20150526
  Receipt Date: 20150526
  Transmission Date: 20150821
  Serious: Yes (Other)
  Sender: FDA-Public Use
  Company Number: JP-GLAXOSMITHKLINE-JP2015068742

PATIENT
  Age: 78 Year
  Sex: Male

DRUGS (2)
  1. NICORETTE [Suspect]
     Active Substance: NICOTINE
     Indication: PRODUCT USED FOR UNKNOWN INDICATION
     Dosage: 96 DF, UNK
     Route: 048
  2. NICORETTE [Suspect]
     Active Substance: NICOTINE
     Dosage: 12 DF, UNK
     Route: 048

REACTIONS (3)
  - Incorrect drug administration duration [Unknown]
  - Drug dependence [Unknown]
  - Overdose [Unknown]
